FAERS Safety Report 7787588-8 (Version None)
Quarter: 2011Q3

REPORT INFORMATION
  Report Type: 
  Country: None (occurrence: None)
  Receive Date: 20110929
  Receipt Date: 20110923
  Transmission Date: 20111222
  Serious: Yes (Hospitalization)
  Sender: FDA-Public Use
  Company Number: US-GILEAD-2011-0042167

PATIENT

DRUGS (3)
  1. LETAIRIS [Suspect]
     Route: 048
     Dates: start: 20101230
  2. ADCIRCA [Concomitant]
  3. REMODULIN [Concomitant]

REACTIONS (1)
  - HEPATIC FUNCTION ABNORMAL [None]
